FAERS Safety Report 7234579-1 (Version None)
Quarter: 2011Q1

REPORT INFORMATION
  Report Type: 
  Country: None (occurrence: None)
  Receive Date: 20110120
  Receipt Date: 20110110
  Transmission Date: 20110831
  Serious: Yes (Hospitalization)
  Sender: FDA-Public Use
  Company Number: US-BIOGENIDEC-2009BI041740

PATIENT
  Age: 50 Year
  Sex: Female

DRUGS (3)
  1. NEURONTIN [Concomitant]
     Indication: MULTIPLE SCLEROSIS
  2. TYSABRI [Suspect]
     Indication: MULTIPLE SCLEROSIS
     Route: 042
     Dates: start: 20080701
  3. CABETROL [Concomitant]
     Indication: CONVULSION

REACTIONS (1)
  - COMPLEX PARTIAL SEIZURES [None]
